FAERS Safety Report 5077929-7 (Version None)
Quarter: 2006Q3

REPORT INFORMATION
  Report Type: 
  Country: None (occurrence: None)
  Receive Date: 20060808
  Receipt Date: 20060712
  Transmission Date: 20061208
  Serious: Yes (Death, Other)
  Sender: FDA-Public Use
  Company Number: MAG-2006-0000476

PATIENT
  Age: 71 Year
  Sex: Female

DRUGS (14)
  1. OXYCODONE HCL CONTROLLED RELEASE TABLETS (OXYCODONE HYDROCHLORIDE) PRO [Suspect]
     Indication: PAIN
     Dosage: SEE IMAGE, ORAL
     Route: 048
     Dates: start: 20060406, end: 20060522
  2. OXYCODONE HCL CONTROLLED RELEASE TABLETS (OXYCODONE HYDROCHLORIDE) PRO [Suspect]
     Indication: PAIN
     Dosage: SEE IMAGE, ORAL
     Route: 048
     Dates: start: 20060523, end: 20060706
  3. OXYCODONE HCL CONTROLLED RELEASE TABLETS (OXYCODONE HYDROCHLORIDE) PRO [Suspect]
     Indication: PAIN
     Dosage: SEE IMAGE, ORAL
     Route: 048
     Dates: start: 20060707, end: 20060722
  4. INDOMETACIN (INDOMETACIN, INDOMETACIN) [Concomitant]
  5. HERBAL PREPARATION [Concomitant]
  6. GABAPENTIN [Concomitant]
  7. PAMIDRONATE DISODIUM [Concomitant]
  8. MANNITOL [Concomitant]
  9. FUROSEMIDE [Concomitant]
  10. DEXAMETHASONE TAB [Concomitant]
  11. GINKGO BILOBA (GINKGO BILOBA) [Concomitant]
  12. HERBAL PREPARATION [Concomitant]
  13. ANALGESICS [Concomitant]
  14. MORPHINE SULFATE [Concomitant]

REACTIONS (9)
  - ACTIVITIES OF DAILY LIVING IMPAIRED [None]
  - DISORIENTATION [None]
  - INSOMNIA [None]
  - MULTI-ORGAN FAILURE [None]
  - MUSCULAR WEAKNESS [None]
  - NAUSEA [None]
  - PITTING OEDEMA [None]
  - SOMNOLENCE [None]
  - VISION BLURRED [None]
